FAERS Safety Report 12267657 (Version 2)
Quarter: 2016Q3

REPORT INFORMATION
  Report Type: Spontaneous
  Country: US (occurrence: US)
  Receive Date: 20160414
  Receipt Date: 20160714
  Transmission Date: 20161109
  Serious: No
  Sender: FDA-Public Use
  Company Number: US-GALDERMA-US16001125

PATIENT
  Age: 51 Year
  Sex: Female

DRUGS (6)
  1. CLINIQUE ACNE SOLUTIONS MAKE-UP [Concomitant]
     Route: 061
     Dates: start: 20160211, end: 20160218
  2. NEUTROGENA ULTRA GENTLE FACE WASH [Concomitant]
     Indication: THERAPEUTIC SKIN CARE TOPICAL
     Route: 061
  3. UNSPECIFIED VITAMINS [Concomitant]
     Active Substance: VITAMINS
     Route: 048
  4. AFTERGLOW ORGANIC MINERAL MAKE-UP [Concomitant]
     Route: 061
     Dates: start: 20160301
  5. JUICY BEAUTY FACE WASH [Concomitant]
     Indication: THERAPEUTIC SKIN CARE TOPICAL
     Route: 061
  6. SOOLANTRA [Suspect]
     Active Substance: IVERMECTIN
     Indication: ACNE CYSTIC
     Dosage: 1%
     Route: 061
     Dates: start: 20160213

REACTIONS (7)
  - Herpes simplex [Recovered/Resolved]
  - Rash papular [Recovering/Resolving]
  - Herpes zoster [Recovering/Resolving]
  - Dermatitis allergic [Recovered/Resolved]
  - Product use issue [Recovered/Resolved]
  - Skin irritation [Recovered/Resolved]
  - Acne [Recovered/Resolved]

NARRATIVE: CASE EVENT DATE: 201602
